FAERS Safety Report 15396643 (Version 1)
Quarter: 2018Q3

REPORT INFORMATION
  Report Type: Other
  Country: US (occurrence: US)
  Receive Date: 20180918
  Receipt Date: 20180918
  Transmission Date: 20181010
  Serious: No
  Sender: FDA-Public Use
  Company Number: US-LEADIANT BIOSCIENCES INC-2018STPI000273

PATIENT
  Sex: Female

DRUGS (1)
  1. MATULANE [Suspect]
     Active Substance: PROCARBAZINE HYDROCHLORIDE
     Indication: HODGKIN^S DISEASE
     Dosage: 200 MG, QD X 6 DAYS
     Route: 048
     Dates: start: 20171114

REACTIONS (4)
  - Nausea [Unknown]
  - Fatigue [Unknown]
  - Nerve injury [Unknown]
  - Myalgia [Unknown]
